FAERS Safety Report 6755774-1 (Version None)
Quarter: 2010Q2

REPORT INFORMATION
  Report Type: 
  Country: None (occurrence: None)
  Receive Date: 20100604
  Receipt Date: 20100527
  Transmission Date: 20101027
  Serious: Yes (Other)
  Sender: FDA-Public Use
  Company Number: US-ELI_LILLY_AND_COMPANY-US201005007763

PATIENT
  Sex: Female
  Weight: 80.726 kg

DRUGS (7)
  1. HUMULIN 70/30 [Suspect]
     Indication: DIABETES MELLITUS
     Dosage: 40 U, EACH MORNING
  2. HUMULIN 70/30 [Suspect]
     Dosage: 40 U, EACH MORNING
  3. HYDROCODONE [Concomitant]
  4. PREDNISONE TAB [Concomitant]
     Indication: SARCOIDOSIS
  5. CALCIUM CARBONATE [Concomitant]
  6. NEXIUM [Concomitant]
  7. LYRICA [Concomitant]

REACTIONS (3)
  - BLINDNESS [None]
  - JOINT INJURY [None]
  - VISION BLURRED [None]
